FAERS Safety Report 9605530 (Version 2)
Quarter: 2013Q4

REPORT INFORMATION
  Report Type: Spontaneous
  Country: US (occurrence: US)
  Receive Date: 20131008
  Receipt Date: 20131011
  Transmission Date: 20140711
  Serious: No
  Sender: FDA-Public Use
  Company Number: US-BAYER-2013-121389

PATIENT
  Sex: Male

DRUGS (3)
  1. MIDOL EXTENDED RELIEF CAPLET [Suspect]
     Indication: ABDOMINAL PAIN UPPER
     Dosage: UNK
  2. IBUPROFEN [Suspect]
     Indication: ABDOMINAL PAIN UPPER
     Dosage: 2 DF, UNK
  3. VICODIN [Suspect]
     Indication: ABDOMINAL PAIN UPPER
     Dosage: UNK

REACTIONS (1)
  - Drug ineffective [None]
